FAERS Safety Report 13006895 (Version 2)
Quarter: 2019Q4

REPORT INFORMATION
  Report Type: Spontaneous
  Country: CN (occurrence: CN)
  Receive Date: 20161207
  Receipt Date: 20191120
  Transmission Date: 20200122
  Serious: Yes (Death)
  Sender: FDA-Public Use
  Company Number: CN-OTSUKA-2016_028566

PATIENT
  Age: 82 Year
  Sex: Male

DRUGS (6)
  1. NORVASC [Concomitant]
     Active Substance: AMLODIPINE BESYLATE
     Indication: BLOOD PRESSURE MEASUREMENT
     Dosage: 5 MG (5 MG,1 IN 1 D)
     Route: 065
  2. TAMSULOSIN [Concomitant]
     Active Substance: TAMSULOSIN
     Indication: BENIGN PROSTATIC HYPERPLASIA
     Dosage: (0.2 MG,1)
     Route: 048
  3. DACOGEN [Suspect]
     Active Substance: DECITABINE
     Dosage: 50 MG (50 MG,1 IN 1 D)
     Route: 042
     Dates: start: 20150723, end: 20150727
  4. DACOGEN [Suspect]
     Active Substance: DECITABINE
     Indication: MYELODYSPLASTIC SYNDROME
     Dosage: 50 MG (50 MG,1 IN 1 D)
     Route: 042
     Dates: start: 20150630
  5. DACOGEN [Suspect]
     Active Substance: DECITABINE
     Dosage: 50 MG (50 MG,1 IN 1 D)
     Route: 042
     Dates: start: 20150811
  6. MICARDIS [Concomitant]
     Active Substance: TELMISARTAN
     Indication: BLOOD PRESSURE MEASUREMENT
     Dosage: 80 MG (80 MG,1 IN 1 D)
     Route: 048

REACTIONS (1)
  - Death [Fatal]
